FAERS Safety Report 8499886-3 (Version None)
Quarter: 2012Q3

REPORT INFORMATION
  Report Type: 
  Country: None (occurrence: None)
  Receive Date: 20120710
  Receipt Date: 20120706
  Transmission Date: 20120928
  Serious: Yes (Hospitalization)
  Sender: FDA-Public Use
  Company Number: JP-B.I. PHARMACEUTICALS,INC./RIDGEFIELD-2012-BP-15193NB

PATIENT
  Sex: Female

DRUGS (9)
  1. MUCOSOLVAN [Concomitant]
     Indication: PNEUMONIA
     Route: 048
  2. VITAMIN B12 [Concomitant]
     Indication: QUADRIPLEGIA
     Route: 048
  3. VITAMEDIN [Concomitant]
     Route: 048
  4. SHAKUYAKUKANZOTO [Concomitant]
     Indication: QUADRIPLEGIA
     Dosage: 18 MCG
     Route: 048
  5. FLUVOXAMINE MALEATE [Concomitant]
     Indication: QUADRIPLEGIA
     Route: 048
  6. SYMBICORT [Concomitant]
     Indication: CHRONIC OBSTRUCTIVE PULMONARY DISEASE
     Dosage: 640 MCG
     Route: 055
     Dates: start: 20110817
  7. SPIRIVA [Suspect]
     Indication: CHRONIC OBSTRUCTIVE PULMONARY DISEASE
     Dosage: 5 MCG
     Route: 055
     Dates: start: 20110817
  8. OMEPRAZOLE [Concomitant]
     Indication: GASTRIC ULCER
     Route: 048
  9. MUCODYNE [Concomitant]
     Indication: PNEUMONIA
     Route: 048

REACTIONS (1)
  - FEMUR FRACTURE [None]
